FAERS Safety Report 8508468-6 (Version None)
Quarter: 2012Q3

REPORT INFORMATION
  Report Type: 
  Country: None (occurrence: None)
  Receive Date: 20120713
  Receipt Date: 20120702
  Transmission Date: 20120928
  Serious: Yes (Hospitalization)
  Sender: FDA-Public Use
  Company Number: PL-BAYER-2012-066245

PATIENT
  Age: 69 Year
  Sex: Male

DRUGS (6)
  1. FINASTERIDE [Concomitant]
     Dosage: UNK
     Dates: start: 20110608
  2. PLACEBO [Suspect]
     Indication: HEPATIC NEOPLASM MALIGNANT
     Dosage: UNK
     Route: 048
     Dates: start: 20100602
  3. ORNITHINE [Concomitant]
     Dosage: UNK
     Dates: start: 20100504
  4. SORAFENIB (RAF KINASE INHIBITOR) [Suspect]
     Dosage: 400 MG, QD
     Route: 048
     Dates: start: 20110623, end: 20111108
  5. SORAFENIB (RAF KINASE INHIBITOR) [Suspect]
     Indication: HEPATIC NEOPLASM MALIGNANT
     Dosage: 800 MG, QD
     Route: 048
     Dates: start: 20100602
  6. TAMSULOSIN HCL [Concomitant]
     Dosage: UNK
     Dates: start: 20110608

REACTIONS (1)
  - CEREBRAL ISCHAEMIA [None]
